FAERS Safety Report 4697221-X (Version None)
Quarter: 2005Q2

REPORT INFORMATION
  Report Type: 
  Country: None (occurrence: None)
  Receive Date: 20050622
  Receipt Date: 20041203
  Transmission Date: 20051028
  Serious: Yes (Other)
  Sender: FDA-Public Use
  Company Number: GB-GLAXOSMITHKLINE-B0361110A

PATIENT
  Sex: Female

DRUGS (5)
  1. PAROXETINE HYDROCHLORIDE [Suspect]
     Route: 065
     Dates: start: 19950101
  2. PAROXETINE HYDROCHLORIDE [Suspect]
     Route: 065
  3. FLUOXETINE [Concomitant]
     Route: 065
  4. THYROXINE [Concomitant]
     Indication: HYPOTHYROIDISM
     Route: 065
  5. TRAZODONE [Concomitant]
     Route: 065

REACTIONS (12)
  - DISTURBANCE IN ATTENTION [None]
  - DIZZINESS [None]
  - DRUG WITHDRAWAL SYNDROME [None]
  - HYPOTHYROIDISM [None]
  - INSOMNIA [None]
  - IRRITABILITY [None]
  - MEMORY IMPAIRMENT [None]
  - PRURITUS [None]
  - SUICIDAL IDEATION [None]
  - TEARFULNESS [None]
  - URTICARIA [None]
  - WEIGHT INCREASED [None]
